FAERS Safety Report 7687593-6 (Version None)
Quarter: 2011Q3

REPORT INFORMATION
  Report Type: 
  Country: None (occurrence: None)
  Receive Date: 20110817
  Receipt Date: 20110809
  Transmission Date: 20111222
  Serious: Yes (Other)
  Sender: FDA-Public Use
  Company Number: US-BAYER-200940953NA

PATIENT
  Age: 62 Year
  Sex: Male
  Weight: 96 kg

DRUGS (24)
  1. NITROGLYCERIN [Concomitant]
  2. PROTONIX [Concomitant]
     Dosage: 40 MG, QD
     Route: 048
  3. CARVEDILOL [Concomitant]
     Dosage: 12.5 MG, BID
     Route: 048
  4. ALTACE [Concomitant]
     Dosage: 10 MG, QD
     Route: 048
  5. HEPARIN [Concomitant]
     Dosage: 27,000 UNITS
     Route: 042
     Dates: start: 20070207
  6. PROTAMINE [Concomitant]
     Dosage: 250MG
     Route: 042
     Dates: start: 20070207
  7. BENICAR [Concomitant]
     Dosage: 40 MG, QD
     Route: 048
  8. HUMALOG [Concomitant]
     Dosage: 2 UNITS PER HOUR
     Route: 058
  9. NITROGLYCERIN [Concomitant]
     Dosage: UNK
     Route: 042
     Dates: start: 20070207
  10. RENAGEL [Concomitant]
     Dosage: 400 MG, TID
     Route: 048
     Dates: start: 20070201
  11. NORVASC [Concomitant]
     Dosage: 10 MG, QD
     Route: 048
  12. ACETYLSALICYLIC ACID SRT [Concomitant]
     Dosage: 81 MG, QD
     Route: 048
  13. LOVENOX [Concomitant]
     Dosage: 0.5MG PER KILOGRAM DAILY
     Route: 058
     Dates: start: 20070204
  14. PROCRIT [Concomitant]
     Dosage: 20,000 UNITS ONCE WEEKLY
     Route: 058
     Dates: start: 20070205
  15. DOPAMINE HCL [Concomitant]
     Dosage: UNK
     Route: 042
     Dates: start: 20070207
  16. TRASYLOL [Suspect]
     Indication: CORONARY ARTERY BYPASS
     Dosage: LOADING DOSE -  200ML FOLLOWED BY 50ML/HOUR INFUSION
     Route: 042
     Dates: start: 20070207, end: 20070207
  17. ENOXAPARIN [Concomitant]
  18. RENA-VITE [Concomitant]
     Dosage: ONE TABLET DAILY
     Route: 048
     Dates: start: 20070201
  19. PRAVACHOL [Concomitant]
     Dosage: 40 MG, HS
     Route: 048
  20. TRENTAL [Concomitant]
     Dosage: 400 MG, TID
     Route: 048
  21. LIPITOR [Concomitant]
     Dosage: 10 MG, HS
     Route: 048
     Dates: start: 20070201
  22. RED BLOOD CELLS [Concomitant]
     Dosage: UNK
     Dates: start: 20070206
  23. NITROGLYCERIN [Concomitant]
     Dosage: 180MG
     Route: 042
     Dates: start: 20070207
  24. FENTANYL [Concomitant]
     Dosage: 20MG
     Route: 042
     Dates: start: 20070207

REACTIONS (10)
  - RENAL FAILURE [None]
  - INJURY [None]
  - EMOTIONAL DISTRESS [None]
  - PAIN [None]
  - STRESS [None]
  - ANHEDONIA [None]
  - ANXIETY [None]
  - RENAL INJURY [None]
  - FEAR [None]
  - UNEVALUABLE EVENT [None]
